FAERS Safety Report 13403598 (Version 1)
Quarter: 2017Q2

REPORT INFORMATION
  Report Type: Spontaneous
  Country: CA (occurrence: CA)
  Receive Date: 20170404
  Receipt Date: 20170404
  Transmission Date: 20170830
  Serious: Yes (Other)
  Sender: FDA-Public Use
  Company Number: CA-TEVA-755497ACC

PATIENT
  Age: 34 Year
  Sex: Female
  Weight: 65.83 kg

DRUGS (1)
  1. TEVA-GABAPENTIN 100MG [Suspect]
     Active Substance: GABAPENTIN
     Dosage: 100 MILLIGRAM DAILY;
     Route: 048

REACTIONS (3)
  - Rash erythematous [Recovered/Resolved]
  - Lip blister [Recovered/Resolved]
  - Rash pruritic [Recovered/Resolved]
